FAERS Safety Report 16077053 (Version 1)
Quarter: 2019Q1

REPORT INFORMATION
  Report Type: Spontaneous
  Country: US (occurrence: US)
  Receive Date: 20190315
  Receipt Date: 20190315
  Transmission Date: 20190418
  Serious: No
  Sender: FDA-Public Use
  Company Number: US-PFIZER INC-2019111927

PATIENT
  Age: 79 Year
  Sex: Male

DRUGS (6)
  1. AMLODIPINE BESILATE [Suspect]
     Active Substance: AMLODIPINE BESYLATE
     Dosage: UNK
  2. BENZOIN [Suspect]
     Active Substance: ALOE\BENZOIN\LIQUIDAMBAR STYRACIFLUA RESIN\TOLU BALSAM
     Dosage: UNK
  3. BUTORPHANOL TARTRATE. [Suspect]
     Active Substance: BUTORPHANOL TARTRATE
     Dosage: UNK
  4. OLMESARTAN [Suspect]
     Active Substance: OLMESARTAN
     Dosage: UNK
  5. NIFEDIPINE. [Suspect]
     Active Substance: NIFEDIPINE
     Dosage: UNK
  6. CIPROFLOXACIN. [Suspect]
     Active Substance: CIPROFLOXACIN
     Dosage: UNK

REACTIONS (1)
  - Drug hypersensitivity [Unknown]
